FAERS Safety Report 13099961 (Version 4)
Quarter: 2018Q2

REPORT INFORMATION
  Report Type: Report from Study
  Country: None (occurrence: US)
  Receive Date: 20170110
  Receipt Date: 20180522
  Transmission Date: 20180711
  Serious: Yes (Hospitalization, Other)
  Sender: FDA-Public Use
  Company Number: US-ABBVIE-17K-163-1830817-00

PATIENT
  Age: 59 Year
  Sex: Male

DRUGS (5)
  1. CARVEDILOL. [Concomitant]
     Active Substance: CARVEDILOL
     Indication: PRODUCT USED FOR UNKNOWN INDICATION
  2. HUMIRA [Suspect]
     Active Substance: ADALIMUMAB
     Indication: CROHN^S DISEASE
     Route: 058
     Dates: start: 20161216
  3. PREDNISONE. [Concomitant]
     Active Substance: PREDNISONE
     Indication: CROHN^S DISEASE
  4. CITALOPRAM [Concomitant]
     Active Substance: CITALOPRAM HYDROBROMIDE
     Indication: ANXIETY
  5. SULFASALAZINE. [Concomitant]
     Active Substance: SULFASALAZINE
     Indication: PRODUCT USED FOR UNKNOWN INDICATION

REACTIONS (13)
  - Arthralgia [Unknown]
  - Large intestinal stenosis [Not Recovered/Not Resolved]
  - Aortic dilatation [Unknown]
  - Drug ineffective [Unknown]
  - Pseudopolyp [Unknown]
  - Abdominal pain [Recovered/Resolved]
  - Palpitations [Unknown]
  - Large intestinal obstruction [Recovered/Resolved]
  - Dysuria [Unknown]
  - Ventricular extrasystoles [Unknown]
  - Pollakiuria [Unknown]
  - Large intestinal obstruction [Recovered/Resolved]
  - Pyrexia [Unknown]

NARRATIVE: CASE EVENT DATE: 20170102
